FAERS Safety Report 8538330-4 (Version None)
Quarter: 2012Q3

REPORT INFORMATION
  Report Type: 
  Country: None (occurrence: None)
  Receive Date: 20120726
  Receipt Date: 20120705
  Transmission Date: 20120928
  Serious: No
  Sender: FDA-Public Use
  Company Number: US-009507513-2012SP029660

PATIENT

DRUGS (2)
  1. NASONEX [Suspect]
     Indication: CHRONIC OBSTRUCTIVE PULMONARY DISEASE
     Dosage: 2 DF, QD
     Route: 045
  2. METICORTEN [Concomitant]

REACTIONS (3)
  - OFF LABEL USE [None]
  - RESPIRATORY DISORDER [None]
  - ASTHMA [None]
